FAERS Safety Report 5798348-1 (Version None)
Quarter: 2008Q3

REPORT INFORMATION
  Report Type: 
  Country: None (occurrence: None)
  Receive Date: 20080702
  Receipt Date: 20080627
  Transmission Date: 20090109
  Serious: Yes (Life-Threatening)
  Sender: FDA-Public Use
  Company Number: FR-AVENTIS-200812454FR

PATIENT
  Age: 77 Year
  Sex: Male

DRUGS (10)
  1. AMARYL [Suspect]
     Indication: TYPE 2 DIABETES MELLITUS
     Route: 048
  2. INSULIN RAPID                      /01094901/ [Suspect]
     Indication: TYPE 2 DIABETES MELLITUS
     Route: 058
  3. SOLUPRED                           /00016209/ [Concomitant]
     Route: 048
     Dates: start: 20080201, end: 20080224
  4. PRIMPERAN                          /00041901/ [Concomitant]
     Dosage: DOSE: 3 TO 6 TABLETS DAILY
     Route: 048
  5. DURAGESIC-100 [Concomitant]
     Indication: PAIN
     Route: 003
  6. SEVREDOL [Concomitant]
     Indication: PAIN
     Route: 048
  7. GAVISCON [Concomitant]
     Route: 048
  8. MOPRAL                             /00661201/ [Concomitant]
     Route: 048
  9. GLUCOPHAGE [Concomitant]
     Indication: TYPE 2 DIABETES MELLITUS
     Route: 048
     Dates: end: 20080224
  10. INNOHEP                            /01707902/ [Concomitant]
     Indication: DEEP VEIN THROMBOSIS
     Route: 058

REACTIONS (4)
  - COMA [None]
  - DRUG INTERACTION [None]
  - HYPOGLYCAEMIA [None]
  - HYPOKALAEMIA [None]
